FAERS Safety Report 5002978-4 (Version None)
Quarter: 2006Q2

REPORT INFORMATION
  Report Type: 
  Country: None (occurrence: None)
  Receive Date: 20060516
  Receipt Date: 20051018
  Transmission Date: 20061013
  Serious: Yes (Hospitalization)
  Sender: FDA-Public Use
  Company Number: US-MERCK-0510USA07751

PATIENT
  Age: 65 Year
  Sex: Female
  Weight: 64 kg

DRUGS (13)
  1. VIOXX [Suspect]
     Indication: RHEUMATOID ARTHRITIS
     Route: 048
     Dates: start: 20000510, end: 20031213
  2. ALLEGRA [Concomitant]
     Route: 065
  3. AMOXICILLIN [Concomitant]
     Route: 065
  4. PREDNISONE [Concomitant]
     Route: 065
     Dates: start: 20000125, end: 20000515
  5. ULTRAM [Concomitant]
     Route: 065
     Dates: start: 20000508, end: 20000804
  6. CHOLESTYRAMINE RESIN [Concomitant]
     Route: 065
  7. ARAVA [Concomitant]
     Route: 065
  8. FOLIC ACID [Concomitant]
     Route: 065
  9. ZYRTEC [Concomitant]
     Route: 065
  10. PIROXICAM [Concomitant]
     Route: 065
  11. REMICADE [Concomitant]
     Route: 065
  12. VASERETIC [Concomitant]
     Route: 065
  13. VASOTEC [Concomitant]
     Route: 048
     Dates: start: 19960101, end: 20031201

REACTIONS (10)
  - ARTHRITIS [None]
  - BLADDER NEOPLASM [None]
  - CORONARY ARTERY DISEASE [None]
  - CORONARY ARTERY OCCLUSION [None]
  - DYSPNOEA [None]
  - DYSPNOEA EXERTIONAL [None]
  - EJECTION FRACTION DECREASED [None]
  - GASTROOESOPHAGEAL REFLUX DISEASE [None]
  - MYOCARDIAL INFARCTION [None]
  - SWELLING [None]
